FAERS Safety Report 7450904-0 (Version None)
Quarter: 2011Q2

REPORT INFORMATION
  Report Type: 
  Country: None (occurrence: None)
  Receive Date: 20110429
  Receipt Date: 20110429
  Transmission Date: 20111010
  Serious: Yes (Other)
  Sender: FDA-Public Use
  Company Number: None

PATIENT
  Age: 56 Year
  Sex: Female
  Weight: 71.6683 kg

DRUGS (1)
  1. ACTONEL [Suspect]
     Indication: OSTEOPENIA
     Dosage: ONE TABLET PER MONTH ONE TIME

REACTIONS (7)
  - BONE PAIN [None]
  - NAUSEA [None]
  - PYREXIA [None]
  - NECK PAIN [None]
  - MUSCULOSKELETAL PAIN [None]
  - DIARRHOEA [None]
  - ARTHRALGIA [None]
